FAERS Safety Report 5108861-8 (Version None)
Quarter: 2006Q3

REPORT INFORMATION
  Report Type: 
  Country: None (occurrence: None)
  Receive Date: 20060915
  Receipt Date: 20060915
  Transmission Date: 20061208
  Serious: Yes (Life-Threatening, Disabling)
  Sender: FDA-Public Use
  Company Number: None

PATIENT
  Age: 58 Year
  Sex: Female
  Weight: 85 kg

DRUGS (2)
  1. TIGECYCLINE    50MG     WYETH [Suspect]
     Indication: BACTERIA SPUTUM IDENTIFIED
     Dosage: 50MG  Q12H   IV
     Route: 042
     Dates: start: 20060219, end: 20060222
  2. TIGECYCLINE    50MG     WYETH [Suspect]
     Indication: KLEBSIELLA INFECTION
     Dosage: 50MG  Q12H   IV
     Route: 042
     Dates: start: 20060219, end: 20060222

REACTIONS (2)
  - CONVULSION [None]
  - HYPOGLYCAEMIA [None]
